FAERS Safety Report 7873739-3 (Version None)
Quarter: 2011Q4

REPORT INFORMATION
  Report Type: 
  Country: None (occurrence: None)
  Receive Date: 20111030
  Receipt Date: 20110509
  Transmission Date: 20120403
  Serious: No
  Sender: FDA-Public Use
  Company Number: US-AMGEN-USASP2011020496

PATIENT
  Age: 61 Year
  Sex: Female

DRUGS (2)
  1. ENBREL [Suspect]
     Indication: PSORIATIC ARTHROPATHY
     Dosage: 50 MG, QWK
     Dates: start: 20110210
  2. ENBREL [Suspect]
     Dates: start: 20110210

REACTIONS (15)
  - INJECTION SITE ERYTHEMA [None]
  - RHINORRHOEA [None]
  - ORAL HERPES [None]
  - GLOSSODYNIA [None]
  - MALAISE [None]
  - OROPHARYNGEAL PAIN [None]
  - RESPIRATORY TRACT CONGESTION [None]
  - SINUS CONGESTION [None]
  - DRUG INEFFECTIVE [None]
  - INFECTION [None]
  - INJECTION SITE PAIN [None]
  - STOMATITIS [None]
  - LABORATORY TEST ABNORMAL [None]
  - FATIGUE [None]
  - DYSPNOEA [None]
